FAERS Safety Report 10195047 (Version 5)
Quarter: 2014Q3

REPORT INFORMATION
  Report Type: Spontaneous
  Country: JP (occurrence: JP)
  Receive Date: 20140526
  Receipt Date: 20140807
  Transmission Date: 20150326
  Serious: Yes (Death, Other)
  Sender: FDA-Public Use
  Company Number: PHHY2014JP062851

PATIENT
  Age: 46 Year
  Sex: Female
  Weight: 48 kg

DRUGS (15)
  1. RISPERIDONE. [Concomitant]
     Active Substance: RISPERIDONE
     Indication: RESTLESSNESS
     Dosage: 1 MG
     Route: 048
     Dates: start: 20140523, end: 20140528
  2. ROHYPNOL [Concomitant]
     Active Substance: FLUNITRAZEPAM
     Indication: INSOMNIA
     Dosage: 1 MG
     Route: 048
     Dates: start: 20140505, end: 20140512
  3. FEBURIC [Concomitant]
     Active Substance: FEBUXOSTAT
     Indication: HYPERURICAEMIA
     Dosage: 20 MG
     Route: 048
     Dates: start: 20140602, end: 20140602
  4. AFINITOR [Suspect]
     Active Substance: EVEROLIMUS
     Route: 048
     Dates: end: 20140520
  5. REBAMIPIDE [Concomitant]
     Active Substance: REBAMIPIDE
     Indication: ABDOMINAL PAIN UPPER
     Dosage: 300 MG
     Route: 048
     Dates: start: 20140522, end: 20140528
  6. NOVAMIN [Concomitant]
     Active Substance: PROCHLORPERAZINE MALEATE
     Indication: NAUSEA
     Dosage: 15 MG
     Route: 048
     Dates: start: 20140522, end: 20140528
  7. MAGLAX [Concomitant]
     Active Substance: MAGNESIUM OXIDE
     Indication: CONSTIPATION
     Dosage: 990 MG
     Route: 048
     Dates: start: 20140522, end: 20140528
  8. OXINORM//OXYCODONE HYDROCHLORIDE [Concomitant]
     Indication: PAIN
     Dosage: 20 MG
     Route: 048
     Dates: start: 20140520, end: 20140530
  9. FAMOTIDINE. [Concomitant]
     Active Substance: FAMOTIDINE
     Indication: ABDOMINAL PAIN UPPER
     Dosage: 10 MG
     Route: 048
     Dates: start: 20140522, end: 20140601
  10. DECADRON [Concomitant]
     Active Substance: DEXAMETHASONE
     Indication: PALLIATIVE CARE
     Dosage: 0.5 MG
     Route: 048
     Dates: start: 20140509, end: 20140519
  11. AFINITOR [Suspect]
     Active Substance: EVEROLIMUS
     Dosage: 5 MG, DAILY
     Route: 048
     Dates: start: 20140602, end: 20140602
  12. MEXITIL [Concomitant]
     Active Substance: MEXILETINE HYDROCHLORIDE
     Indication: HYPOAESTHESIA
     Dosage: 150 MG
     Route: 048
     Dates: start: 20140529, end: 20140531
  13. AFINITOR [Suspect]
     Active Substance: EVEROLIMUS
     Indication: PANCREATIC NEUROENDOCRINE TUMOUR
     Dosage: 5 MG, DAILY
     Route: 048
     Dates: start: 20140502
  14. LOXOPROFEN [Concomitant]
     Active Substance: LOXOPROFEN
     Indication: PAIN
     Dosage: 180 MG
     Route: 048
     Dates: start: 20140522, end: 20140528
  15. FENTOS [Concomitant]
     Active Substance: FENTANYL
     Indication: PAIN
     Dosage: 2 MG
     Route: 061
     Dates: start: 20140520, end: 20140521

REACTIONS (20)
  - Gastric cancer [Fatal]
  - Tumour lysis syndrome [Fatal]
  - Oxygen saturation decreased [Recovered/Resolved]
  - Ileus [Fatal]
  - Ascites [Fatal]
  - Pleural effusion [Fatal]
  - Second primary malignancy [Fatal]
  - Dyspnoea [Recovered/Resolved]
  - Wheezing [Recovered/Resolved]
  - Malignant pleural effusion [Fatal]
  - Respiratory failure [Fatal]
  - Malaise [Recovered/Resolved]
  - Bone marrow failure [Recovered/Resolved]
  - Pyrexia [Recovered/Resolved]
  - Rales [Recovered/Resolved]
  - Tachycardia [Unknown]
  - Malignant ascites [Fatal]
  - Interstitial lung disease [Not Recovered/Not Resolved]
  - General physical health deterioration [Unknown]
  - Chest pain [Recovered/Resolved]

NARRATIVE: CASE EVENT DATE: 20140512
